FAERS Safety Report 10161428 (Version 2)
Quarter: 2014Q2

REPORT INFORMATION
  Report Type: Spontaneous
  Country: US (occurrence: US)
  Receive Date: 20140509
  Receipt Date: 20140509
  Transmission Date: 20141212
  Serious: No
  Sender: FDA-Public Use
  Company Number: US-TEVA-413454USA

PATIENT
  Age: 18 Year
  Sex: Male

DRUGS (1)
  1. CLARAVIS [Suspect]
     Dosage: 60 MILLIGRAM DAILY;
     Route: 048
     Dates: start: 20130320

REACTIONS (4)
  - Staphylococcal skin infection [Recovered/Resolved]
  - Eczema [Recovered/Resolved]
  - Photosensitivity reaction [Recovered/Resolved]
  - Dermatitis atopic [Recovered/Resolved]
